FAERS Safety Report 6628687-3 (Version None)
Quarter: 2010Q1

REPORT INFORMATION
  Report Type: 
  Country: None (occurrence: None)
  Receive Date: 20100311
  Receipt Date: 20100303
  Transmission Date: 20100710
  Serious: Yes (Death)
  Sender: FDA-Public Use
  Company Number: ES-BRISTOL-MYERS SQUIBB COMPANY-15009657

PATIENT
  Age: 54 Year
  Sex: Male
  Weight: 67 kg

DRUGS (8)
  1. CETUXIMAB [Suspect]
     Indication: NON-SMALL CELL LUNG CANCER
     Dosage: RECENT DOSE-22FEB10 ALSO 250MG/M2 WEEKLY DOSE
     Route: 042
     Dates: start: 20100202, end: 20100202
  2. CISPLATIN [Suspect]
     Indication: NON-SMALL CELL LUNG CANCER
     Dosage: RECENT DOSE-22FEB10
     Route: 042
     Dates: start: 20100202
  3. ALIMTA [Suspect]
     Indication: NON-SMALL CELL LUNG CANCER
     Dosage: RECENT DOSE-22FEB10
     Route: 042
     Dates: start: 20100202
  4. FOLIC ACID [Concomitant]
     Dates: start: 20100201, end: 20100226
  5. VITAMIN B-12 [Concomitant]
     Dates: start: 20100118, end: 20100118
  6. DEXAMETHASONE [Concomitant]
     Dates: start: 20100201, end: 20100223
  7. ANTIHISTAMINE DRUGS [Concomitant]
  8. FENTANYL [Concomitant]
     Indication: BONE PAIN
     Dates: start: 20100114, end: 20100227

REACTIONS (1)
  - DEATH [None]
